FAERS Safety Report 24176307 (Version 1)
Quarter: 2024Q3

REPORT INFORMATION
  Report Type: Spontaneous
  Country: US (occurrence: US)
  Receive Date: 20240806
  Receipt Date: 20240806
  Transmission Date: 20241016
  Serious: No
  Sender: TAKEDA
  Company Number: US-TAKEDA-2024TUS077762

PATIENT
  Age: 77 Year
  Sex: Female

DRUGS (3)
  1. ENTYVIO [Suspect]
     Active Substance: VEDOLIZUMAB
     Indication: Colitis ulcerative
     Dosage: UNK
     Route: 065
     Dates: start: 201609
  2. REMICADE [Suspect]
     Active Substance: INFLIXIMAB
     Indication: Colitis ulcerative
     Dosage: UNK
     Route: 065
     Dates: start: 202404
  3. PREDNISONE [Concomitant]
     Active Substance: PREDNISONE
     Indication: Colitis
     Dosage: UNK

REACTIONS (3)
  - Faecal calprotectin abnormal [Unknown]
  - Defaecation urgency [Unknown]
  - Rectal tenesmus [Unknown]
